FAERS Safety Report 15737094 (Version 2)
Quarter: 2019Q2

REPORT INFORMATION
  Report Type: Spontaneous
  Country: US (occurrence: US)
  Receive Date: 20181218
  Receipt Date: 20190517
  Transmission Date: 20190711
  Serious: No
  Sender: FDA-Public Use
  Company Number: US-SA-2018SA344023

PATIENT
  Age: 58 Year
  Sex: Female

DRUGS (16)
  1. METOPROLOL. [Concomitant]
     Active Substance: METOPROLOL
  2. TRAMADOL HCL [Concomitant]
     Active Substance: TRAMADOL HYDROCHLORIDE
  3. HYDROXYCHLOROQUINE [Concomitant]
     Active Substance: HYDROXYCHLOROQUINE
  4. MELOXICAM. [Concomitant]
     Active Substance: MELOXICAM
  5. KEVZARA [Suspect]
     Active Substance: SARILUMAB
     Dosage: 200 MG, QOW
     Route: 058
     Dates: start: 201805
  6. CITALOPRAM [Concomitant]
     Active Substance: CITALOPRAM HYDROBROMIDE
  7. SIMVASTATIN. [Concomitant]
     Active Substance: SIMVASTATIN
  8. ASPIRIN [ACETYLSALICYLIC ACID] [Concomitant]
     Active Substance: ASPIRIN
  9. VITAMIN D3 [Concomitant]
     Active Substance: CHOLECALCIFEROL
  10. DIAZEPAM. [Concomitant]
     Active Substance: DIAZEPAM
  11. SAVELLA [Concomitant]
     Active Substance: MILNACIPRAN HYDROCHLORIDE
  12. LISINOPRIL. [Concomitant]
     Active Substance: LISINOPRIL
  13. VITAMIN B12 [COBAMAMIDE] [Concomitant]
     Dosage: 1000 UG
  14. LOSARTAN. [Concomitant]
     Active Substance: LOSARTAN
  15. VITAMIN E [Concomitant]
     Active Substance: .ALPHA.-TOCOPHEROL
  16. AMLODIPINE [Concomitant]
     Active Substance: AMLODIPINE BESYLATE

REACTIONS (9)
  - Hypertension [Recovered/Resolved]
  - Insomnia [Recovered/Resolved]
  - Weight decreased [Recovered/Resolved]
  - Anaemia [Recovered/Resolved]
  - Facial pain [Recovered/Resolved]
  - Migraine [Recovered/Resolved]
  - Fatigue [Recovered/Resolved]
  - Decreased appetite [Recovered/Resolved]
  - Ocular hyperaemia [Recovered/Resolved]
